FAERS Safety Report 9222782 (Version 1)
Quarter: 2013Q1

REPORT INFORMATION
  Report Type: Spontaneous
  Country: US (occurrence: None)
  Receive Date: 20120914
  Receipt Date: 20120914
  Transmission Date: 20140127
  Serious: Yes (Hospitalization, Other)
  Sender: FDA-Public Use
  Company Number: JPI-P-018660

PATIENT
  Age: 50 Year
  Sex: Male
  Weight: 171.91 kg

DRUGS (6)
  1. XYREM (500 MG/ML SOLUTION)(SODIUM OXYBATE) [Suspect]
     Indication: INSOMNIA
     Dosage: TWO DOSES OF 2.25 GM TAKEN NIGHTLY/AT BEDTIME.
     Route: 048
     Dates: start: 20111107
  2. XYREM (500 MG/ML SOLUTION)(SODIUM OXYBATE) [Suspect]
     Indication: PAIN
     Dosage: TWO DOSES OF 2.25 GM TAKEN NIGHTLY/AT BEDTIME.
     Route: 048
     Dates: start: 20111107
  3. ZANAFLEX (TIZANIDINE) [Concomitant]
  4. ACTIQ (FENTANYL CITRATE) [Concomitant]
  5. DIAZEPAM [Concomitant]
  6. LISINOPRIL [Concomitant]

REACTIONS (6)
  - Fall [None]
  - Asthenia [None]
  - Abasia [None]
  - Fatigue [None]
  - Incoherent [None]
  - Back pain [None]
